FAERS Safety Report 5894306-7 (Version None)
Quarter: 2008Q3

REPORT INFORMATION
  Report Type: 
  Country: None (occurrence: None)
  Receive Date: 20080923
  Receipt Date: 20080418
  Transmission Date: 20090109
  Serious: No
  Sender: FDA-Public Use
  Company Number: US-ASTRAZENECA-2008UW08010

PATIENT

DRUGS (3)
  1. SEROQUEL [Suspect]
     Indication: BIPOLAR DISORDER
     Route: 048
  2. SEROQUEL [Suspect]
     Dosage: 600 MG IN EVENING AND 150 MG IN THE AFTERNOON
     Route: 048
  3. LEXAPRO [Concomitant]

REACTIONS (1)
  - CONDITION AGGRAVATED [None]
